FAERS Safety Report 4521596-5 (Version None)
Quarter: 2004Q4

REPORT INFORMATION
  Report Type: 
  Country: None (occurrence: None)
  Receive Date: 20041208
  Receipt Date: 20041208
  Transmission Date: 20050328
  Serious: Yes (Life-Threatening, Hospitalization)
  Sender: FDA-Public Use
  Company Number: None

PATIENT
  Age: 84 Year
  Sex: Female

DRUGS (2)
  1. GATIFLOXACIN [Suspect]
     Indication: URINARY TRACT INFECTION
     Dosage: 200MG   DAILY  ORAL
     Route: 048
     Dates: start: 20040619, end: 20040624
  2. ZOCOR [Concomitant]

REACTIONS (1)
  - BLOOD GLUCOSE DECREASED [None]
